FAERS Safety Report 21609823 (Version 1)
Quarter: 2022Q4

REPORT INFORMATION
  Report Type: Spontaneous
  Country: CN (occurrence: CN)
  Receive Date: 20221117
  Receipt Date: 20221117
  Transmission Date: 20230113
  Serious: Yes (Hospitalization, Other)
  Sender: FDA-Public Use
  Company Number: CN-GLAXOSMITHKLINE-CN2022GSK163103

PATIENT

DRUGS (2)
  1. SERETIDE [Suspect]
     Active Substance: FLUTICASONE PROPIONATE\SALMETEROL XINAFOATE
     Indication: Chronic obstructive pulmonary disease
     Dosage: UNK UNK, BID, 50?G/500?G, ONE ORAL INHALATION EACH TIME
     Route: 055
     Dates: start: 2016
  2. SPIRIVA [Concomitant]
     Active Substance: TIOTROPIUM BROMIDE MONOHYDRATE
     Indication: Chronic obstructive pulmonary disease
     Dosage: UNK UNK, QD, ONE ORAL INHALATION EACH TIME
     Route: 055

REACTIONS (19)
  - Pulmonary tuberculosis [Unknown]
  - Chronic obstructive pulmonary disease [Unknown]
  - Cough [Recovered/Resolved]
  - Dyspnoea [Unknown]
  - Haemoptysis [Recovered/Resolved]
  - Rales [Unknown]
  - Lymph node calcification [Not Recovered/Not Resolved]
  - Pneumonia [Unknown]
  - Emphysema [Recovering/Resolving]
  - Pleural effusion [Recovering/Resolving]
  - Respiratory failure [Unknown]
  - Condition aggravated [Unknown]
  - Pleural thickening [Recovering/Resolving]
  - Pleural adhesion [Recovering/Resolving]
  - Lung disorder [Unknown]
  - Condition aggravated [Recovering/Resolving]
  - Restrictive pulmonary disease [Unknown]
  - Chronic disease [Unknown]
  - Pulmonary hypertension [Unknown]

NARRATIVE: CASE EVENT DATE: 20190501
